FAERS Safety Report 7785016-X (Version None)
Quarter: 2011Q3

REPORT INFORMATION
  Report Type: 
  Country: None (occurrence: None)
  Receive Date: 20110929
  Receipt Date: 20110926
  Transmission Date: 20111222
  Serious: Yes (Death, Hospitalization)
  Sender: FDA-Public Use
  Company Number: US-BRISTOL-MYERS SQUIBB COMPANY-16020521

PATIENT
  Age: 63 Year
  Sex: Male
  Weight: 94 kg

DRUGS (8)
  1. MIRTAZAPINE [Concomitant]
  2. MILK OF MAGNESIA TAB [Concomitant]
  3. PEPCID [Concomitant]
  4. PRINZIDE [Concomitant]
  5. TEMAZEPAM [Concomitant]
  6. NEUPOGEN [Suspect]
     Indication: MALIGNANT MELANOMA
     Dosage: LAST DOSE ON 26AUG11
     Route: 058
     Dates: start: 20110721
  7. DILAUDID [Concomitant]
  8. IPILIMUMAB [Suspect]
     Indication: MALIGNANT MELANOMA
     Dosage: LAST DOSE ON 12AUG11
     Route: 042
     Dates: start: 20110721

REACTIONS (7)
  - NEOPLASM MALIGNANT [None]
  - HYPERKALAEMIA [None]
  - DYSPNOEA [None]
  - MULTI-ORGAN FAILURE [None]
  - RENAL FAILURE ACUTE [None]
  - NEUTROPHIL COUNT DECREASED [None]
  - HYPONATRAEMIA [None]
